FAERS Safety Report 10042627 (Version 3)
Quarter: 2014Q2

REPORT INFORMATION
  Report Type: Spontaneous
  Country: JP (occurrence: JP)
  Receive Date: 20140327
  Receipt Date: 20140414
  Transmission Date: 20141212
  Serious: Yes (Hospitalization, Other)
  Sender: FDA-Public Use
  Company Number: PHJP2014JP000658

PATIENT
  Age: 49 Year
  Sex: Female

DRUGS (12)
  1. TEGRETOL TAB 200MG [Suspect]
     Indication: TRIGEMINAL NEURALGIA
     Dosage: 1000 MG (600 TO 1000) MG PER DAY
     Route: 048
  2. TEGRETOL TAB 200MG [Suspect]
     Dosage: 600 MG/DAY IN 4 DOSES PER DAY
     Route: 048
  3. TEGRETOL TAB 200MG [Suspect]
     Dosage: 500 MG/DAY
     Route: 048
  4. TEGRETOL TAB 200MG [Suspect]
     Dosage: 400 MG/ DAY
     Route: 048
  5. MEXILETINE [Concomitant]
     Indication: PAIN
     Route: 065
  6. BACLOFEN [Concomitant]
     Indication: PAIN
     Route: 065
  7. SAIKOKEISHITO [Concomitant]
     Indication: PAIN
     Route: 048
  8. AMITRIPTYLINE [Concomitant]
     Indication: PAIN
     Dosage: 60 MG\DAY
  9. GABAPEN [Concomitant]
     Indication: PAIN
     Dosage: 1800 MG/DAY
     Route: 048
  10. LAMOTRIGINE [Concomitant]
     Indication: TRIGEMINAL NEURALGIA
     Dosage: 25 MG/DAY
     Route: 048
  11. CODEINE [Concomitant]
     Dosage: 20 MG, BID (AFTER BREAKFAST AND THE EVENING MEAL)
     Route: 048
  12. MEPIVACAINE [Concomitant]
     Indication: SYNOVIAL CYST
     Dosage: 4 ML, (WITH 1 % MEPIVACAINE AT 4 ML) PERFORMED ONCE PER WEEK

REACTIONS (5)
  - Pain [Unknown]
  - Anticonvulsant drug level above therapeutic [Recovering/Resolving]
  - Liver disorder [Recovering/Resolving]
  - Gamma-glutamyltransferase increased [Recovering/Resolving]
  - Nystagmus [Unknown]
